FAERS Safety Report 22884971 (Version 2)
Quarter: 2023Q4

REPORT INFORMATION
  Report Type: Spontaneous
  Country: DK (occurrence: None)
  Receive Date: 20230830
  Receipt Date: 20231109
  Transmission Date: 20240109
  Serious: Yes (Other)
  Sender: FDA-Public Use
  Company Number: 2023A192955

PATIENT
  Age: 73 Year
  Sex: Female

DRUGS (4)
  1. OSIMERTINIB [Suspect]
     Active Substance: OSIMERTINIB
     Indication: Lung adenocarcinoma
     Route: 048
  2. OSIMERTINIB [Suspect]
     Active Substance: OSIMERTINIB
     Indication: Lung adenocarcinoma
     Route: 048
  3. DABRAFENIB [Concomitant]
     Active Substance: DABRAFENIB
  4. TRAMETINIB [Concomitant]
     Active Substance: TRAMETINIB

REACTIONS (4)
  - Metastases to lung [Unknown]
  - Metastasis [Unknown]
  - Drug resistance [Unknown]
  - Acquired gene mutation [Unknown]
